FAERS Safety Report 6986129-2 (Version None)
Quarter: 2010Q3

REPORT INFORMATION
  Report Type: 
  Country: None (occurrence: None)
  Receive Date: 20100910
  Receipt Date: 20100830
  Transmission Date: 20110219
  Serious: Yes (Hospitalization)
  Sender: FDA-Public Use
  Company Number: 2010MA002370

PATIENT
  Age: 39 Year
  Sex: Male

DRUGS (19)
  1. GABAPENTIN [Suspect]
     Indication: NEURALGIA
     Dosage: 3.6 GM; QD; PO
     Route: 048
     Dates: start: 20091030, end: 20100706
  2. TRAMADOL HYDROCHLORIDE [Suspect]
     Indication: PAIN
     Dosage: 400 MG; QD; PO
     Route: 048
     Dates: start: 20080219
  3. STRATTERA [Suspect]
     Indication: ATTENTION DEFICIT/HYPERACTIVITY DISORDER
     Dosage: 80 MG; QD; PO
     Route: 048
     Dates: start: 20100324, end: 20100706
  4. CLOMIPRAMINE HCL [Suspect]
     Indication: PRODUCT USED FOR UNKNOWN INDICATION
     Dosage: 100 MG; QD; PO
     Route: 048
     Dates: start: 20080219
  5. LIPITOR [Concomitant]
  6. OMEPRAZOL ABCUR [Concomitant]
  7. LEVEMIR [Concomitant]
  8. NULYTELY [Concomitant]
  9. RAMIPRIL [Concomitant]
  10. METOPROLOL TARTRATE [Concomitant]
  11. INOLAXOL [Concomitant]
  12. ACETAMINOPHEN [Concomitant]
  13. DEXOFEN [Concomitant]
  14. IMOUR [Concomitant]
  15. ASPIRIN [Concomitant]
  16. ZOLPIDEM TARTRATE [Concomitant]
  17. HUMALOG [Concomitant]
  18. GLYTRIN [Concomitant]
  19. NASACORT [Concomitant]

REACTIONS (6)
  - AGGRESSION [None]
  - CONFUSIONAL STATE [None]
  - EXTENSOR PLANTAR RESPONSE [None]
  - HYPOGLYCAEMIA [None]
  - MYDRIASIS [None]
  - MYOCLONUS [None]
